FAERS Safety Report 19042866 (Version 1)
Quarter: 2021Q1

REPORT INFORMATION
  Report Type: Spontaneous
  Country: US (occurrence: US)
  Receive Date: 20210323
  Receipt Date: 20210323
  Transmission Date: 20210420
  Serious: Yes (Hospitalization, Other)
  Sender: FDA-Public Use
  Company Number: US-BIOVITRUM-2021US2992

PATIENT
  Sex: Male
  Weight: 6 kg

DRUGS (7)
  1. MULTIVITAMINS [Concomitant]
     Active Substance: VITAMINS
  2. DIURIL [Concomitant]
     Active Substance: CHLOROTHIAZIDE
  3. ALBUTEROL. [Concomitant]
     Active Substance: ALBUTEROL
  4. SYNAGIS [Suspect]
     Active Substance: PALIVIZUMAB
     Indication: BRONCHOPULMONARY DYSPLASIA
  5. FLOVENT [Concomitant]
     Active Substance: FLUTICASONE PROPIONATE
  6. SYNAGIS [Suspect]
     Active Substance: PALIVIZUMAB
     Indication: PREMATURE BABY
     Route: 030
  7. CALCIUM [Concomitant]
     Active Substance: CALCIUM

REACTIONS (2)
  - Hydrocephalus [Unknown]
  - Seizure [Unknown]
